FAERS Safety Report 20672397 (Version 3)
Quarter: 2022Q2

REPORT INFORMATION
  Report Type: Spontaneous
  Country: FR (occurrence: FR)
  Receive Date: 20220405
  Receipt Date: 20220502
  Transmission Date: 20220721
  Serious: Yes (Death, Hospitalization, Other)
  Sender: FDA-Public Use
  Company Number: FR-BRISTOL-MYERS SQUIBB COMPANY-2022-010313

PATIENT
  Age: 78 Year
  Sex: Male
  Weight: 47.17 kg

DRUGS (2)
  1. ISTODAX [Suspect]
     Active Substance: ROMIDEPSIN
     Indication: Anaplastic large-cell lymphoma
     Route: 042
     Dates: start: 20220218, end: 20220302
  2. ISTODAX [Suspect]
     Active Substance: ROMIDEPSIN
     Route: 042

REACTIONS (4)
  - Death [Fatal]
  - Diabetes mellitus [Unknown]
  - Sepsis [Unknown]
  - Cardiac dysfunction [Unknown]
